FAERS Safety Report 16927066 (Version 4)
Quarter: 2021Q2

REPORT INFORMATION
  Report Type: Report from Study
  Country: GB (occurrence: GB)
  Receive Date: 20191016
  Receipt Date: 20210510
  Transmission Date: 20210716
  Serious: Yes (Death, Hospitalization, Other)
  Sender: FDA-Public Use
  Company Number: GB-MYLANLABS-2019M1097001

PATIENT
  Age: 81 Year
  Sex: Female

DRUGS (71)
  1. TRASTUZUMAB EMTANSINE [Suspect]
     Active Substance: ADO-TRASTUZUMAB EMTANSINE
     Indication: BREAST CANCER METASTATIC
     Dosage: 220 MILLIGRAM, Q3W
     Route: 042
     Dates: start: 20180928, end: 20190315
  2. CALCICHEW D3 FORTE [Concomitant]
     Active Substance: CALCIUM\CHOLECALCIFEROL
     Dosage: UNK UNK, BID (0.5 DAY)
     Route: 048
     Dates: start: 20160323
  3. ZOLEDRONIC ACID [Concomitant]
     Active Substance: ZOLEDRONIC ACID
     Dosage: EVERY 3?4WEEKS FOR 9 CYCLES THEN 3 MONTHS
     Route: 042
     Dates: start: 20160414, end: 20170112
  4. SITAGLIPTIN [Concomitant]
     Active Substance: SITAGLIPTIN
     Dosage: 100 MILLIGRAM, QD
     Route: 048
  5. TAMOXIFEN [Suspect]
     Active Substance: TAMOXIFEN
     Indication: BREAST CANCER METASTATIC
     Dosage: 20 MILLIGRAM, QD
     Route: 048
     Dates: start: 20180704, end: 20180915
  6. PERTUZUMAB. [Suspect]
     Active Substance: PERTUZUMAB
     Indication: BREAST CANCER METASTATIC
     Dosage: 840 MILLIGRAM, Q3W
     Route: 042
     Dates: start: 20160225, end: 20160225
  7. COCODAMOL [Concomitant]
     Active Substance: ACETAMINOPHEN\CODEINE PHOSPHATE
     Indication: BACK PAIN
     Dosage: 2 DOSAGE FORM 2 TABLET
     Route: 048
     Dates: start: 20160707
  8. ZOLEDRONIC ACID [Concomitant]
     Active Substance: ZOLEDRONIC ACID
     Dosage: 3 MILLIGRAM
     Route: 042
     Dates: start: 20170628, end: 20171220
  9. PHOSPHATE SANDOZ [Concomitant]
     Active Substance: SODIUM PHOSPHATE, MONOBASIC, ANHYDROUS
     Dosage: UNK
     Route: 048
     Dates: start: 20190423, end: 20190425
  10. SODIUM BICARBONATE. [Concomitant]
     Active Substance: SODIUM BICARBONATE
     Indication: HYPOPHOSPHATAEMIA
     Dosage: 2 TABLET
     Route: 048
     Dates: start: 20190611, end: 20190614
  11. COCODAMOL [Concomitant]
     Active Substance: ACETAMINOPHEN\CODEINE PHOSPHATE
     Dosage: 1 DOSAGE FORM, PRN
     Route: 048
  12. DEXAMETHASONE. [Concomitant]
     Active Substance: DEXAMETHASONE
     Dosage: 8 MILLIGRAM, BID (16 MG QD)
     Route: 048
     Dates: start: 20160225
  13. METOCLOPRAMIDE. [Concomitant]
     Active Substance: METOCLOPRAMIDE
     Dosage: 10 MILLIGRAM 0.33 DAY
     Route: 048
  14. DOMPERIDONE [Concomitant]
     Active Substance: DOMPERIDONE
     Dosage: 10 MILLIGRAM, 0.33 DAY
     Route: 048
     Dates: start: 20160225
  15. MACROGOL [Concomitant]
     Active Substance: POLYETHYLENE GLYCOLS
     Dosage: UNK, BID (0.5 D)
     Route: 048
  16. POTASSIUM BICARBONATE. [Concomitant]
     Active Substance: POTASSIUM BICARBONATE
     Indication: HYPOPHOSPHATAEMIA
     Dosage: UNK
     Route: 048
     Dates: start: 20190611, end: 20190614
  17. SODIUM PHOSPHATE MONOBASIC [Concomitant]
     Active Substance: SODIUM PHOSPHATE, MONOBASIC
     Indication: HYPOPHOSPHATAEMIA
     Dosage: 2 DOSAGE FORM
     Route: 048
     Dates: start: 20190611, end: 20190614
  18. RIVAROXABAN [Concomitant]
     Active Substance: RIVAROXABAN
     Dosage: UNK, QD
     Route: 048
     Dates: start: 20181128
  19. ATORVASTATIN [Concomitant]
     Active Substance: ATORVASTATIN
     Dosage: 20 MILLIGRAM, QD
     Route: 048
  20. ZOLEDRONIC ACID [Concomitant]
     Active Substance: ZOLEDRONIC ACID
     Indication: PROPHYLAXIS
     Dosage: 3.3 MILLIGRAM, MONTHLY
     Route: 042
     Dates: start: 20160226
  21. GLICLAZIDE [Concomitant]
     Active Substance: GLICLAZIDE
     Dosage: 80 MILLIGRAM, QD
     Route: 048
     Dates: start: 201809, end: 20190424
  22. POTASSIUM CHLORIDE. [Concomitant]
     Active Substance: POTASSIUM CHLORIDE
     Indication: BLOOD POTASSIUM DECREASED
     Dosage: UNK MMOL/L, AS NECESSARY, EVERY 3?4WEEKS FOR 9 CYCLES THEN 3 MONTHS
     Route: 042
     Dates: start: 20190611, end: 20190620
  23. TRASTUZUMAB EMTANSINE [Suspect]
     Active Substance: ADO-TRASTUZUMAB EMTANSINE
     Indication: HER2 POSITIVE BREAST CANCER
  24. NERATINIB [Suspect]
     Active Substance: NERATINIB
     Indication: HER2 POSITIVE BREAST CANCER
     Dosage: 240 MILLIGRAM, QD
     Route: 048
     Dates: start: 20190403
  25. XGEVA [Suspect]
     Active Substance: DENOSUMAB
     Indication: PRODUCT USED FOR UNKNOWN INDICATION
     Dosage: 120 MILLIGRAM.EVERY 3 TO 4 WEEKS
     Route: 058
     Dates: start: 20180110, end: 20190426
  26. CALCICHEW D3 FORTE [Concomitant]
     Active Substance: CALCIUM\CHOLECALCIFEROL
     Dosage: 2 DOSAGE FORM, QD
     Route: 048
     Dates: start: 20160323
  27. LOPERAMIDE [Concomitant]
     Active Substance: LOPERAMIDE
     Dosage: 2 MILLIGRAM, PRN
     Route: 048
     Dates: start: 20160225
  28. TRAMADOL HYDROCHLORIDE. [Concomitant]
     Active Substance: TRAMADOL HYDROCHLORIDE
     Dosage: 50 MILLIGRAM, QID (200 MILLIGRAM, QD)
     Route: 048
     Dates: start: 20160217
  29. METOCLOPRAMIDE. [Concomitant]
     Active Substance: METOCLOPRAMIDE
     Dosage: 30 MILLIGRAM, QD
     Route: 048
  30. ZOLEDRONIC ACID [Concomitant]
     Active Substance: ZOLEDRONIC ACID
     Dosage: 3.3 MILLIGRAM
     Route: 042
     Dates: start: 20170209, end: 20170323
  31. ZOLEDRONIC ACID [Concomitant]
     Active Substance: ZOLEDRONIC ACID
     Dosage: 3 MILLIGRAM
     Route: 042
     Dates: start: 20190510, end: 20190529
  32. MACROGOL [Concomitant]
     Active Substance: POLYETHYLENE GLYCOLS
     Dosage: 2 DOSAGE FORM, QD
     Route: 048
  33. LINAGLIPTIN [Concomitant]
     Active Substance: LINAGLIPTIN
     Dosage: 5 MILLIGRAM, QD
     Route: 048
     Dates: start: 201809, end: 201905
  34. DIPROBASE                          /01210201/ [Concomitant]
     Dosage: UNK
  35. TRASTUZUMAB. [Suspect]
     Active Substance: TRASTUZUMAB
     Indication: BREAST CANCER METASTATIC
     Dosage: 525 MILLIGRAM, Q3W
     Route: 042
     Dates: start: 20160225, end: 20160225
  36. PERTUZUMAB. [Suspect]
     Active Substance: PERTUZUMAB
     Indication: HER2 POSITIVE BREAST CANCER
     Dosage: 420 MILLIGRAM, Q3W(MAINTAINENCE DOSE)
     Route: 042
     Dates: start: 20160225, end: 20180704
  37. CHLORHEXIDINE GLUCONATE ETHANOL [Concomitant]
     Indication: PROPHYLAXIS
     Dosage: 4 DOSAGE FORM, QD
     Route: 048
     Dates: start: 20160225
  38. METFORMIN [Concomitant]
     Active Substance: METFORMIN HYDROCHLORIDE
     Dosage: 1000 MILLIGRAM, BID
  39. MAGNESIUM GLYCEROPHOSPHATE [Concomitant]
     Active Substance: MAGNESIUM GLYCEROPHOSPHATE
     Indication: HYPOMAGNESAEMIA
     Dosage: 12 MILLIMOLE, QD
     Route: 048
     Dates: start: 20160526, end: 20160530
  40. ZOPICLONE [Concomitant]
     Active Substance: ZOPICLONE
     Dosage: 3.75 MILLIGRAM, QD
     Route: 048
     Dates: start: 20160217
  41. CANDESARTAN. [Concomitant]
     Active Substance: CANDESARTAN
     Dosage: 8 MILLIGRAM, QD
     Route: 048
  42. MACROGOL [Concomitant]
     Active Substance: POLYETHYLENE GLYCOLS
     Dosage: UNK, QD (2 UNK, QD (SACHET))
     Route: 065
  43. GLICLAZIDE [Concomitant]
     Active Substance: GLICLAZIDE
     Dosage: 40 MILLIGRAM, QD
     Route: 048
     Dates: start: 20190620, end: 20190705
  44. PHOSPHATE SANDOZ [Concomitant]
     Active Substance: SODIUM PHOSPHATE, MONOBASIC, ANHYDROUS
     Dosage: 2 DOSAGE FORM 0.33 D
     Route: 048
     Dates: start: 20190618, end: 20190625
  45. TRASTUZUMAB. [Suspect]
     Active Substance: TRASTUZUMAB
     Dosage: 350 MILLIGRAM, Q3W
     Route: 042
     Dates: start: 20160707, end: 20180822
  46. TAMOXIFEN [Suspect]
     Active Substance: TAMOXIFEN
     Indication: HER2 POSITIVE BREAST CANCER
  47. LETROZOLE. [Suspect]
     Active Substance: LETROZOLE
     Indication: BREAST CANCER METASTATIC
     Dosage: 2.5 MILLIGRAM, QD
     Route: 048
     Dates: start: 20160413, end: 20180704
  48. LETROZOLE. [Suspect]
     Active Substance: LETROZOLE
     Indication: HER2 POSITIVE BREAST CANCER
  49. MIMPARA [Suspect]
     Active Substance: CINACALCET HYDROCHLORIDE
     Indication: HYPERCALCAEMIA OF MALIGNANCY
     Dosage: 30 MILLIGRAM, QD
     Route: 048
     Dates: start: 20190413, end: 20190705
  50. CHLORHEXIDINE GLUCONATE ETHANOL [Concomitant]
     Dosage: UNK UNK, QID (0.25 DAY)
     Route: 048
     Dates: start: 20160225
  51. CHLORHEXIDINE GLUCONATE ETHANOL [Concomitant]
     Dosage: 0.8 PERCENT, QD
     Route: 048
     Dates: start: 20160225
  52. METFORMIN [Concomitant]
     Active Substance: METFORMIN HYDROCHLORIDE
     Dosage: 2000 MILLIGRAM, QD
     Route: 048
  53. DOMPERIDONE [Concomitant]
     Active Substance: DOMPERIDONE
     Dosage: 30 MILLIGRAM, QD
     Route: 048
     Dates: start: 20160225
  54. ZOLEDRONIC ACID [Concomitant]
     Active Substance: ZOLEDRONIC ACID
     Dosage: 3.5 MILLIGRAM, QD
     Route: 042
     Dates: start: 20190408, end: 20190408
  55. GLICLAZIDE [Concomitant]
     Active Substance: GLICLAZIDE
     Dosage: 80 MILLIGRAM, QD
     Route: 048
     Dates: start: 20190425, end: 201905
  56. BUDESONIDE. [Concomitant]
     Active Substance: BUDESONIDE
     Dosage: 9 MILLIGRAM, QD
     Route: 048
     Dates: start: 20190403, end: 20190523
  57. PREDNISOLONE. [Concomitant]
     Active Substance: PREDNISOLONE
     Dosage: 30 MILLIGRAM, QD
     Route: 048
     Dates: start: 20190606, end: 20190618
  58. DOCUSATE SODIUM. [Concomitant]
     Active Substance: DOCUSATE SODIUM
     Dosage: 400 MILLIGRAM, QD
     Route: 048
  59. OCTASA [Concomitant]
     Active Substance: MESALAMINE
     Indication: GASTROINTESTINAL MOTILITY DISORDER
     Dosage: 2400 MILLIGRAM, QD
     Route: 048
     Dates: start: 20170523, end: 2017
  60. SANDO K                            /00209301/ [Concomitant]
     Active Substance: POTASSIUM BICARBONATE\POTASSIUM CHLORIDE
     Dosage: UNK, QD
     Route: 048
     Dates: start: 20160322, end: 20160326
  61. TINZAPARIN [Concomitant]
     Active Substance: TINZAPARIN
     Dosage: 11000 UNIT
     Route: 058
     Dates: start: 20180915, end: 20181128
  62. TRASTUZUMAB. [Suspect]
     Active Substance: TRASTUZUMAB
     Dosage: 400 MILLIGRAM, Q3W
     Route: 042
     Dates: start: 20160225, end: 20160617
  63. TAXOTERE [Suspect]
     Active Substance: DOCETAXEL
     Indication: BREAST CANCER METASTATIC
     Dosage: 65 MILLIGRAM, Q3W
     Route: 042
     Dates: start: 20160226, end: 20160226
  64. METFORMIN [Concomitant]
     Active Substance: METFORMIN HYDROCHLORIDE
     Dosage: 400 MILLIGRAM, QD(200MG, 0.5D)
     Route: 048
  65. SODIUM CHLORIDE. [Concomitant]
     Active Substance: SODIUM CHLORIDE
     Dosage: 0.9 PERCENT
     Route: 042
     Dates: start: 20190508, end: 20190510
  66. HUMAN ACTRAPID [Concomitant]
     Active Substance: INSULIN HUMAN
     Dosage: UNK
     Route: 058
     Dates: start: 20190620, end: 20190705
  67. PHOSPHATE SANDOZ [Concomitant]
     Active Substance: SODIUM PHOSPHATE, MONOBASIC, ANHYDROUS
     Indication: BLOOD PHOSPHORUS DECREASED
     Dosage: 2 DOSAGE FORM 0.33 DAY
     Route: 048
     Dates: start: 20190611, end: 20190614
  68. PHOSPHATE SANDOZ [Concomitant]
     Active Substance: SODIUM PHOSPHATE, MONOBASIC, ANHYDROUS
     Dosage: 5 MILLILITER, QID (0.25 D)
     Route: 061
     Dates: start: 20190606, end: 20190705
  69. AMLODIPINE [Concomitant]
     Active Substance: AMLODIPINE BESYLATE
     Indication: HYPERTENSION
     Dosage: 5 MILLIGRAM, QD
     Route: 048
     Dates: start: 20180915, end: 20190529
  70. BENZYDAMINE HYDROCHLORIDE [Concomitant]
     Active Substance: BENZYDAMINE HYDROCHLORIDE
     Indication: GLOSSODYNIA
     Dosage: 5 MILLILITER
     Route: 061
     Dates: start: 20190606, end: 20190705
  71. TRIMETHOPRIM. [Concomitant]
     Active Substance: TRIMETHOPRIM
     Indication: URINARY TRACT INFECTION
     Dosage: UNK
     Route: 048
     Dates: start: 20190412, end: 20190414

REACTIONS (9)
  - Disease progression [Fatal]
  - Diarrhoea [Recovered/Resolved]
  - Off label use [Unknown]
  - Acute kidney injury [Recovered/Resolved]
  - Back pain [Not Recovered/Not Resolved]
  - Weight decreased [Not Recovered/Not Resolved]
  - Vomiting [Recovered/Resolved]
  - Pulmonary embolism [Recovered/Resolved]
  - Urinary tract infection [Recovered/Resolved]

NARRATIVE: CASE EVENT DATE: 20180915
